FAERS Safety Report 9527864 (Version 1)
Quarter: 2013Q1

REPORT INFORMATION
  Report Type: Spontaneous
  Country: US (occurrence: None)
  Receive Date: 20130313
  Receipt Date: 20130313
  Transmission Date: 20140127
  Serious: Yes (Other)
  Sender: FDA-Public Use
  Company Number: 1000030112

PATIENT
  Sex: Male

DRUGS (1)
  1. SAVELLA [Suspect]
     Route: 048

REACTIONS (1)
  - Stevens-Johnson syndrome [None]
